FAERS Safety Report 8914583 (Version 1)
Quarter: 2012Q4

REPORT INFORMATION
  Report Type: 
  Country: UG (occurrence: UG)
  Receive Date: 20121119
  Receipt Date: 20121119
  Transmission Date: 20130627
  Serious: Yes (Death, Life-Threatening, Other)
  Sender: FDA-Public Use
  Company Number: UG-ROXANE LABORATORIES, INC.-2012-RO-02379RO

PATIENT
  Age: 35 Year
  Sex: Male

DRUGS (9)
  1. FLUCONAZOLE [Suspect]
     Indication: MENINGITIS CRYPTOCOCCAL
     Dosage: 400 mg
  2. FLUCONAZOLE [Suspect]
     Dosage: 200 mg
  3. FLUCONAZOLE [Suspect]
     Dosage: 800 mg
     Route: 048
  4. ZIDOVUDINE [Suspect]
     Indication: ANTIRETROVIRAL THERAPY
  5. PREDNISOLONE [Suspect]
     Indication: IMMUNE RECONSTITUTION INFLAMMATORY SYNDROME
     Dosage: 60 mg
  6. PREDNISOLONE [Suspect]
  7. SULFAMETHOXAZOLE\TRIMETHOPRIM [Suspect]
     Indication: PROPHYLAXIS
  8. LAMIVUDINE [Suspect]
     Indication: ANTIRETROVIRAL THERAPY
  9. EFAVIRENZ [Suspect]
     Indication: ANTIRETROVIRAL THERAPY

REACTIONS (5)
  - Death [Fatal]
  - Meningitis cryptococcal [Unknown]
  - Immune reconstitution inflammatory syndrome [Unknown]
  - Neurocryptococcosis [Unknown]
  - Hydrocephalus [Unknown]
